FAERS Safety Report 25176302 (Version 1)
Quarter: 2025Q2

REPORT INFORMATION
  Report Type: Spontaneous
  Country: US (occurrence: US)
  Receive Date: 20250409
  Receipt Date: 20250409
  Transmission Date: 20250717
  Serious: Yes (Hospitalization)
  Sender: ASPIRO PHARMA
  Company Number: US-ASPIRO-ASP2025US01668

PATIENT
  Age: 33 Year
  Sex: Female

DRUGS (2)
  1. LIDOCAINE [Suspect]
     Active Substance: LIDOCAINE
     Indication: Ventricular tachycardia
     Route: 065
  2. NADOLOL [Suspect]
     Active Substance: NADOLOL
     Indication: Ventricular tachycardia
     Route: 065

REACTIONS (2)
  - Treatment failure [Unknown]
  - Off label use [Unknown]
